FAERS Safety Report 11904902 (Version 1)
Quarter: 2016Q1

REPORT INFORMATION
  Report Type: Spontaneous
  Country: US (occurrence: US)
  Receive Date: 20160108
  Receipt Date: 20160108
  Transmission Date: 20160526
  Serious: Yes (Hospitalization)
  Sender: FDA-Public Use
  Company Number: US-ROCHE-1606906

PATIENT
  Sex: Female

DRUGS (4)
  1. ACTIVASE [Suspect]
     Active Substance: ALTEPLASE
     Indication: INTRACARDIAC THROMBUS
     Route: 040
     Dates: start: 20150706
  2. PREVACID [Concomitant]
     Active Substance: LANSOPRAZOLE
     Route: 065
  3. ACTIVASE [Suspect]
     Active Substance: ALTEPLASE
     Indication: CARDIAC VALVE REPLACEMENT COMPLICATION
     Route: 041
     Dates: start: 20150706
  4. COUMADIN [Concomitant]
     Active Substance: WARFARIN SODIUM
     Dosage: DOSE VARIES ON INR;5MG PER DAY IS LAST DOSE LISTED
     Route: 065

REACTIONS (1)
  - No therapeutic response [Unknown]
